FAERS Safety Report 21996829 (Version 1)
Quarter: 2023Q1

REPORT INFORMATION
  Report Type: Spontaneous
  Country: DE (occurrence: DE)
  Receive Date: 20230215
  Receipt Date: 20230215
  Transmission Date: 20230418
  Serious: Yes (Other)
  Sender: FDA-Public Use
  Company Number: DE-ROCHE-3272140

PATIENT
  Age: 67 Year
  Sex: Female

DRUGS (20)
  1. BENDAMUSTINE HYDROCHLORIDE [Suspect]
     Active Substance: BENDAMUSTINE HYDROCHLORIDE
     Indication: Diffuse large B-cell lymphoma
     Dosage: (RITUXIMAB-POLATUZUMAB-BENDAMUSTINE HYDROCHLORIDE)
     Route: 042
     Dates: start: 20210901, end: 20211001
  2. LENALIDOMIDE [Suspect]
     Active Substance: LENALIDOMIDE
     Indication: Diffuse large B-cell lymphoma
     Dosage: (TAFASITAMAB-LENALIDOMID)
     Route: 065
     Dates: start: 20220501, end: 20220615
  3. CARBOPLATIN [Suspect]
     Active Substance: CARBOPLATIN
     Indication: Diffuse large B-cell lymphoma
     Dosage: (R-ICE)CARBOPLATIN;ETOPOSIDE
     Route: 065
     Dates: start: 20220801, end: 20221027
  4. FLUDARABINE [Suspect]
     Active Substance: FLUDARABINE PHOSPHATE
     Indication: Diffuse large B-cell lymphoma
     Dosage: (TREOSULFAN/FLUDARABIN)
     Route: 065
     Dates: start: 202211, end: 202211
  5. ETOPOSIDE [Suspect]
     Active Substance: ETOPOSIDE
     Indication: Diffuse large B-cell lymphoma
     Dosage: (R-ICE)CARBOPLATIN;ETOPOSIDE
     Route: 065
     Dates: start: 20220801, end: 20221027
  6. DOXORUBICIN HYDROCHLORIDE [Suspect]
     Active Substance: DOXORUBICIN HYDROCHLORIDE
     Indication: Diffuse large B-cell lymphoma
     Dosage: CHOP
     Route: 065
     Dates: start: 20201201, end: 20210401
  7. VINCRISTINE SULFATE [Suspect]
     Active Substance: VINCRISTINE SULFATE
     Indication: Diffuse large B-cell lymphoma
     Dosage: CHOP
     Route: 065
     Dates: start: 20201201, end: 20210401
  8. CISPLATIN [Suspect]
     Active Substance: CISPLATIN
     Indication: Diffuse large B-cell lymphoma
     Dosage: (R-DHAP)DHAP
     Route: 065
     Dates: start: 20210601, end: 20210801
  9. DEXAMETHASONE [Suspect]
     Active Substance: DEXAMETHASONE
     Indication: Diffuse large B-cell lymphoma
     Dosage: (R-DHAP)DHAP
     Route: 065
     Dates: start: 20210601, end: 20210801
  10. PREDNISONE [Suspect]
     Active Substance: PREDNISONE
     Indication: Diffuse large B-cell lymphoma
     Dosage: CHOP
     Route: 065
     Dates: start: 20201201, end: 20210401
  11. CYCLOPHOSPHAMIDE [Suspect]
     Active Substance: CYCLOPHOSPHAMIDE
     Indication: Diffuse large B-cell lymphoma
     Dosage: CHOP
     Route: 065
     Dates: start: 20201201, end: 20210401
  12. POLIVY [Suspect]
     Active Substance: POLATUZUMAB VEDOTIN-PIIQ
     Indication: Diffuse large B-cell lymphoma
     Dosage: (RITUXIMAB-POLATUZUMAB-BENDAMUSTINE HYDROCHLORIDE)
     Route: 065
     Dates: start: 20210901, end: 20211001
  13. TAFASITAMAB-CXIX [Suspect]
     Active Substance: TAFASITAMAB-CXIX
     Indication: Diffuse large B-cell lymphoma
     Dosage: (TAFASITAMAB - LENALIDOMID)
     Route: 065
     Dates: start: 20220501, end: 20220615
  14. MABTHERA [Suspect]
     Active Substance: RITUXIMAB
     Indication: Diffuse large B-cell lymphoma
     Dosage: (R-CHOP)
     Route: 065
     Dates: start: 20201201, end: 20210401
  15. MABTHERA [Suspect]
     Active Substance: RITUXIMAB
     Dosage: UNK UNK, UNKNOWN FREQ. (R-DHAP)
     Route: 065
     Dates: start: 20210601, end: 20210801
  16. MABTHERA [Suspect]
     Active Substance: RITUXIMAB
     Dosage: UNK UNK, UNKNOWN FREQ. (RITUXIMAB-POLATUZUMAB-BENDAMUSTINE HYDROCHLORIDE)
     Route: 065
     Dates: start: 20210901, end: 20211001
  17. MABTHERA [Suspect]
     Active Substance: RITUXIMAB
     Dosage: UNK UNK, UNKNOWN FREQ. (R-ICE)
     Route: 065
     Dates: start: 20220801, end: 20221027
  18. TREOSULFAN [Suspect]
     Active Substance: TREOSULFAN
     Indication: Diffuse large B-cell lymphoma
     Dosage: (TREOSULFAN/FLUDARABIN)
     Route: 065
     Dates: start: 202211, end: 202211
  19. CYTARABINE [Suspect]
     Active Substance: CYTARABINE
     Indication: Diffuse large B-cell lymphoma
     Dosage: (R-DHAP)DHAP
     Route: 065
     Dates: start: 20210601, end: 20210801
  20. IFOSFAMIDE [Suspect]
     Active Substance: IFOSFAMIDE
     Indication: Diffuse large B-cell lymphoma
     Dosage: (R-ICE)
     Route: 065
     Dates: start: 20220801, end: 20221027

REACTIONS (2)
  - Malignant neoplasm progression [Not Recovered/Not Resolved]
  - Off label use [Unknown]

NARRATIVE: CASE EVENT DATE: 20210901
